FAERS Safety Report 9923448 (Version 2)
Quarter: 2014Q1

REPORT INFORMATION
  Report Type: Spontaneous
  Country: US (occurrence: US)
  Receive Date: 20140225
  Receipt Date: 20140225
  Transmission Date: 20141002
  Serious: No
  Sender: FDA-Public Use
  Company Number: US-AMGEN-USASP2013070881

PATIENT
  Age: 55 Year
  Sex: Male
  Weight: 86.17 kg

DRUGS (4)
  1. ENBREL [Suspect]
     Indication: PRODUCT USED FOR UNKNOWN INDICATION
     Dosage: 50 MG, QWK
     Route: 058
     Dates: start: 20061017
  2. VANOS [Concomitant]
     Dosage: 0.1 %, UNK
  3. PREDNISONE [Concomitant]
     Dosage: 10 MG, UNK
  4. ADVIL COLD [Concomitant]
     Dosage: UNK

REACTIONS (1)
  - Psoriasis [Unknown]
